FAERS Safety Report 7437280-4 (Version None)
Quarter: 2011Q2

REPORT INFORMATION
  Report Type: 
  Country: None (occurrence: None)
  Receive Date: 20110426
  Receipt Date: 20110412
  Transmission Date: 20111010
  Serious: Yes (Hospitalization, Other)
  Sender: FDA-Public Use
  Company Number: FR-JNJFOC-20110405895

PATIENT
  Age: 26 Year
  Sex: Female

DRUGS (7)
  1. REMICADE [Suspect]
     Route: 042
  2. REMICADE [Suspect]
     Indication: CROHN'S DISEASE
     Route: 042
  3. REMICADE [Suspect]
     Indication: COLITIS ULCERATIVE
     Route: 042
  4. REMICADE [Suspect]
     Route: 042
  5. HYDROCORTISONE [Concomitant]
     Indication: PREMEDICATION
     Route: 042
  6. IMODIUM [Concomitant]
  7. ACETORPHAN [Concomitant]

REACTIONS (5)
  - DYSGEUSIA [None]
  - INFUSION RELATED REACTION [None]
  - CHEST DISCOMFORT [None]
  - PALPITATIONS [None]
  - FEELING HOT [None]
